FAERS Safety Report 24732808 (Version 1)
Quarter: 2024Q4

REPORT INFORMATION
  Report Type: Spontaneous
  Country: US (occurrence: US)
  Receive Date: 20241213
  Receipt Date: 20241213
  Transmission Date: 20250115
  Serious: Yes (Death, Other)
  Sender: ADMA BIOLOGICS
  Company Number: US-ADMA BIOLOGICS INC.-US-2024ADM000184

PATIENT
  Age: 66 Year
  Sex: Female

DRUGS (3)
  1. HUMAN IMMUNOGLOBULIN G [Suspect]
     Active Substance: HUMAN IMMUNOGLOBULIN G
     Indication: Myasthenic syndrome
     Dosage: 0.4 GRAM PER KILOGRAM, WEEKLY
     Route: 042
  2. HUMAN IMMUNOGLOBULIN G [Suspect]
     Active Substance: HUMAN IMMUNOGLOBULIN G
     Indication: Neuroendocrine carcinoma
     Dosage: 0.4 GRAM PER KILOGRAM, QOW
     Route: 042
  3. HUMAN IMMUNOGLOBULIN G [Suspect]
     Active Substance: HUMAN IMMUNOGLOBULIN G
     Dosage: 0.4 GRAM PER KILOGRAM, WEEKLY
     Route: 042

REACTIONS (10)
  - Neuroendocrine carcinoma [Fatal]
  - Malignant neoplasm progression [Fatal]
  - Myasthenic syndrome [Fatal]
  - Disease progression [Fatal]
  - Scleroderma [Unknown]
  - Colitis [Unknown]
  - Thyroiditis [Unknown]
  - Camptocormia [Unknown]
  - Infection [Unknown]
  - Off label use [Unknown]
